FAERS Safety Report 21931057 (Version 1)
Quarter: 2023Q1

REPORT INFORMATION
  Report Type: Spontaneous
  Country: US (occurrence: None)
  Receive Date: 20230130
  Receipt Date: 20230130
  Transmission Date: 20230418
  Serious: Yes (Hospitalization)
  Sender: FDA-Public Use
  Company Number: None

PATIENT
  Age: 60 Year
  Sex: Male
  Weight: 79.38 kg

DRUGS (2)
  1. ALPRAZOLAM [Suspect]
     Active Substance: ALPRAZOLAM
     Indication: Anxiety
  2. ALPRAZOLAM [Suspect]
     Active Substance: ALPRAZOLAM
     Indication: Pain

REACTIONS (5)
  - Suspected counterfeit product [None]
  - Product substitution issue [None]
  - Therapeutic product effect decreased [None]
  - Product complaint [None]
  - Suspected product quality issue [None]

NARRATIVE: CASE EVENT DATE: 20220110
